FAERS Safety Report 5873332-8 (Version None)
Quarter: 2008Q3

REPORT INFORMATION
  Report Type: 
  Country: None (occurrence: None)
  Receive Date: 20080908
  Receipt Date: 20080829
  Transmission Date: 20090109
  Serious: Yes (Other)
  Sender: FDA-Public Use
  Company Number: GB-ALLERGAN-0810939US

PATIENT
  Sex: Female

DRUGS (1)
  1. TIMOLOL MALEATE SOL UNSPECIFID [Suspect]
     Indication: GLAUCOMA
     Route: 047

REACTIONS (3)
  - BRADYCARDIA [None]
  - CYANOSIS [None]
  - RESPIRATORY DEPRESSION [None]
